FAERS Safety Report 15430683 (Version 4)
Quarter: 2020Q4

REPORT INFORMATION
  Report Type: Spontaneous
  Country: AU (occurrence: AU)
  Receive Date: 20180926
  Receipt Date: 20201013
  Transmission Date: 20210113
  Serious: Yes (Hospitalization, Other)
  Sender: FDA-Public Use
  Company Number: AU-PFIZER INC-2018381092

PATIENT
  Age: 30 Year
  Sex: Male

DRUGS (19)
  1. GENTAMICIN SULFATE. [Suspect]
     Active Substance: GENTAMICIN SULFATE
     Dosage: UNK
     Route: 055
     Dates: start: 2016, end: 2017
  2. AUGMENTIN DUO [Concomitant]
     Active Substance: AMOXICILLIN\CLAVULANATE POTASSIUM
     Dosage: UNK
  3. LOCACORTEN VIOFORM [Concomitant]
     Active Substance: CLIOQUINOL\FLUMETHASONE
     Dosage: UNK
  4. IMMUNOGLOBULIN HUMAN [Concomitant]
     Active Substance: HUMAN IMMUNOGLOBULIN G
     Dosage: UNK, MONTHLY
  5. VALACICLOVIR RBX [Concomitant]
     Dosage: 500 MG, 2X/DAY AS DIRECTED
  6. EPIDUO FORTE [Concomitant]
     Active Substance: ADAPALENE\BENZOYL PEROXIDE
     Dosage: UNK
  7. PLAQUENIL S [Concomitant]
     Active Substance: HYDROXYCHLOROQUINE SULFATE
     Dosage: UNK
  8. PROPECIA [Concomitant]
     Active Substance: FINASTERIDE
     Indication: ALOPECIA
     Dosage: UNK
  9. GENTAMICIN SULFATE. [Suspect]
     Active Substance: GENTAMICIN SULFATE
     Dosage: TWICE DAILY ON 5 DAYS A MONTH
     Route: 055
     Dates: start: 20150902
  10. DAKTARIN [MICONAZOLE] [Concomitant]
     Active Substance: MICONAZOLE
     Dosage: UNK
  11. HYDROZOLE [Concomitant]
     Active Substance: CLOTRIMAZOLE\HYDROCORTISONE
     Dosage: UNK
  12. IMMUNOGLOBULIN HUMAN [Concomitant]
     Active Substance: HUMAN IMMUNOGLOBULIN G
     Dosage: 800 MG, 5 ML INJECTIONS INJECT 800MG (5ML) AS DIRECTED FIVE TIMES A WEEK
  13. GENTAMICIN SULFATE. [Suspect]
     Active Substance: GENTAMICIN SULFATE
     Dosage: 360 VIALS (OVER A YEAR^S SUPPLY)
     Route: 055
     Dates: start: 2016
  14. ERYTHROMYCIN. [Concomitant]
     Active Substance: ERYTHROMYCIN
     Dosage: 400 MG, UNK
     Route: 048
  15. BACTRIM [Concomitant]
     Active Substance: SULFAMETHOXAZOLE\TRIMETHOPRIM
     Dosage: UNK
  16. GENTAMICIN SULFATE. [Suspect]
     Active Substance: GENTAMICIN SULFATE
     Dosage: UNK
     Route: 055
     Dates: start: 201209, end: 2015
  17. NORFLOXACIN [Concomitant]
     Active Substance: NORFLOXACIN
     Dosage: UNK
  18. XOLAIR [Concomitant]
     Active Substance: OMALIZUMAB
     Dosage: UNK
  19. EMLA [Concomitant]
     Active Substance: LIDOCAINE\PRILOCAINE
     Dosage: APPLY TO THE SELECTED AREA ONE HOUR BEFORE PROCEDURE
     Route: 061

REACTIONS (57)
  - Rash erythematous [Recovered/Resolved]
  - Hypersensitivity [Unknown]
  - Bronchospasm [Unknown]
  - Thrombosis [Unknown]
  - Diarrhoea [Recovering/Resolving]
  - Alopecia [Unknown]
  - Urticarial vasculitis [Unknown]
  - Helicobacter test positive [Unknown]
  - Chronic fatigue syndrome [Not Recovered/Not Resolved]
  - Hepatomegaly [Unknown]
  - Sperm concentration decreased [Unknown]
  - Incorrect route of product administration [Unknown]
  - Irritable bowel syndrome [Unknown]
  - Poor quality sleep [Unknown]
  - Exercise tolerance decreased [Unknown]
  - Tryptase increased [Unknown]
  - Panic attack [Unknown]
  - Memory impairment [Not Recovered/Not Resolved]
  - Mood disorder due to a general medical condition [Unknown]
  - Dyspnoea [Unknown]
  - Asthenia [Unknown]
  - Rash [Unknown]
  - Hepatic steatosis [Unknown]
  - Eosinophilia [Unknown]
  - Abdominal distension [Unknown]
  - Respiratory tract infection [Unknown]
  - Weight decreased [Unknown]
  - Anxiety [Not Recovered/Not Resolved]
  - Depression [Unknown]
  - Salmonellosis [Unknown]
  - Overdose [Unknown]
  - Nausea [Not Recovered/Not Resolved]
  - Decreased appetite [Unknown]
  - Recalled product administered [Recovered/Resolved]
  - Skin wrinkling [Unknown]
  - Lethargy [Not Recovered/Not Resolved]
  - Loss of personal independence in daily activities [Unknown]
  - Malaise [Unknown]
  - Hypotonia [Unknown]
  - Loss of personal independence in daily activities [Not Recovered/Not Resolved]
  - Disturbance in attention [Not Recovered/Not Resolved]
  - Abdominal pain [Recovered/Resolved]
  - Proctalgia [Unknown]
  - Liver function test abnormal [Recovered/Resolved]
  - Sinusitis [Unknown]
  - Diverticulitis [Unknown]
  - Hepatic mass [Unknown]
  - Erectile dysfunction [Unknown]
  - Blood immunoglobulin E decreased [Unknown]
  - Urticaria chronic [Recovered/Resolved]
  - Angioedema [Recovered/Resolved]
  - Pneumonitis [Unknown]
  - Infertility male [Unknown]
  - Feeling abnormal [Unknown]
  - Gastrooesophageal reflux disease [Not Recovered/Not Resolved]
  - Rash maculo-papular [Unknown]
  - Face oedema [Unknown]

NARRATIVE: CASE EVENT DATE: 2016
